FAERS Safety Report 6172480-5 (Version None)
Quarter: 2009Q2

REPORT INFORMATION
  Report Type: 
  Country: None (occurrence: None)
  Receive Date: 20090429
  Receipt Date: 20090415
  Transmission Date: 20091009
  Serious: Yes (Other)
  Sender: FDA-Public Use
  Company Number: NL-GENENTECH-280486

PATIENT

DRUGS (2)
  1. MABTHERA [Suspect]
     Indication: NON-HODGKIN'S LYMPHOMA
     Route: 042
  2. CHEMOTHERAPY NOS [Concomitant]
     Indication: NON-HODGKIN'S LYMPHOMA

REACTIONS (1)
  - LUNG DISORDER [None]
